FAERS Safety Report 9144735 (Version 8)
Quarter: 2014Q2

REPORT INFORMATION
  Report Type: Spontaneous
  Country: US (occurrence: US)
  Receive Date: 20130306
  Receipt Date: 20140604
  Transmission Date: 20141212
  Serious: Yes (Hospitalization, Other)
  Sender: FDA-Public Use
  Company Number: US-009507513-1303USA002306

PATIENT
  Sex: Female
  Weight: 59.41 kg

DRUGS (15)
  1. FOSAMAX [Suspect]
     Indication: OSTEOPENIA
     Dosage: 5 MG QD
     Route: 048
     Dates: start: 199711
  2. FOSAMAX [Suspect]
     Dosage: 10 MG, QD
     Route: 048
     Dates: start: 20021030, end: 20070616
  3. FOSAMAX [Suspect]
     Dosage: 70 MG,QW
     Route: 048
  4. FOSAMAX PLUS D [Suspect]
     Indication: OSTEOPENIA
     Dosage: 2800 IU/70 MG, QW
     Route: 048
     Dates: start: 20070803, end: 20090529
  5. ALENDRONATE SODIUM [Suspect]
     Indication: OSTEOPENIA
     Dosage: 70 MG, QW
     Route: 048
     Dates: start: 20090916, end: 20120102
  6. CALCIUM CITRATE (+) VITAMIN D (UNSPECIFIED) [Concomitant]
     Dosage: 630 MG, UNK
     Dates: start: 1997
  7. OMEGA-3 MARINE TRIGLYCERIDES [Concomitant]
     Dosage: 1500 MG, UNK
     Dates: start: 1997
  8. VITAMINS (UNSPECIFIED) [Concomitant]
     Dosage: 1200 MG, UNK
     Dates: start: 1997
  9. FLUTICASONE [Concomitant]
     Indication: HYPERSENSITIVITY
     Dosage: UNK
     Dates: start: 201108
  10. NASONEX [Concomitant]
     Indication: HYPERSENSITIVITY
     Dosage: UNK
     Dates: start: 200807
  11. TRANSDERM SCOP [Concomitant]
     Indication: HYPERSENSITIVITY
     Dosage: UNK
     Dates: start: 200912, end: 201011
  12. RHINOCORT (BUDESONIDE) [Concomitant]
     Indication: HYPERSENSITIVITY
     Dosage: UNK
     Dates: start: 200912, end: 201011
  13. ADVAIR [Concomitant]
     Indication: HYPERSENSITIVITY
     Dosage: UNK
     Dates: start: 200301
  14. SINGULAIR [Concomitant]
     Indication: HYPERSENSITIVITY
     Dosage: UNK
     Dates: start: 200301
  15. ZYRTEC [Concomitant]
     Indication: HYPERSENSITIVITY
     Dosage: UNK
     Dates: start: 200301

REACTIONS (35)
  - Femur fracture [Recovering/Resolving]
  - Foot fracture [Unknown]
  - Foot fracture [Not Recovered/Not Resolved]
  - Intramedullary rod insertion [Unknown]
  - Pancreatitis [Recovered/Resolved]
  - Joint arthroplasty [Unknown]
  - Fall [Unknown]
  - Foot operation [Unknown]
  - Hyperlipidaemia [Unknown]
  - Bronchitis [Unknown]
  - Mechanical ventilation [Unknown]
  - Muscle strain [Unknown]
  - Cough [Unknown]
  - Gait disturbance [Not Recovered/Not Resolved]
  - Oestrogen deficiency [Unknown]
  - Arthropathy [Unknown]
  - Fracture delayed union [Unknown]
  - Fracture delayed union [Recovering/Resolving]
  - Device dislocation [Unknown]
  - Osteoarthritis [Unknown]
  - Osteoarthritis [Unknown]
  - Cough [Not Recovered/Not Resolved]
  - Hypokalaemia [Unknown]
  - Arthritis [Unknown]
  - Limb operation [Unknown]
  - Foot operation [Unknown]
  - Joint swelling [Unknown]
  - Arthralgia [Not Recovered/Not Resolved]
  - Muscle spasms [Unknown]
  - Rash [Unknown]
  - Rash [Unknown]
  - Pruritus [Unknown]
  - Gastrooesophageal reflux disease [Unknown]
  - Abdominal discomfort [Unknown]
  - Musculoskeletal chest pain [Unknown]
